FAERS Safety Report 10041073 (Version 1)
Quarter: 2014Q1

REPORT INFORMATION
  Report Type: Spontaneous
  Country: AR (occurrence: AR)
  Receive Date: 20140327
  Receipt Date: 20140327
  Transmission Date: 20141002
  Serious: Yes (Hospitalization, Other)
  Sender: FDA-Public Use
  Company Number: AR-PFIZER INC-2014085967

PATIENT
  Age: 60 Year
  Sex: Female

DRUGS (2)
  1. SUTENT [Suspect]
     Indication: RENAL CANCER METASTATIC
     Dosage: 50 MG, UNK
  2. SUTENT [Suspect]
     Dosage: 37.5 MG, UNK

REACTIONS (4)
  - Gastrointestinal haemorrhage [Unknown]
  - Pancytopenia [Unknown]
  - Asthenia [Unknown]
  - Hypertension [Unknown]
